FAERS Safety Report 17337958 (Version 1)
Quarter: 2020Q1

REPORT INFORMATION
  Report Type: Report from Study
  Country: TW (occurrence: TW)
  Receive Date: 20200129
  Receipt Date: 20200129
  Transmission Date: 20200409
  Serious: Yes (Other)
  Sender: FDA-Public Use
  Company Number: TW-ACTELION-A-CH2018-176650

PATIENT
  Age: 41 Year
  Sex: Female

DRUGS (6)
  1. UPTRAVI [Suspect]
     Active Substance: SELEXIPAG
     Dosage: 600 MCG, BID
     Route: 048
     Dates: start: 20181119
  2. OPSUMIT [Suspect]
     Active Substance: MACITENTAN
     Indication: PULMONARY ARTERIAL HYPERTENSION
     Dosage: 10 MG, QD
     Route: 048
     Dates: start: 20170131
  3. UPTRAVI [Suspect]
     Active Substance: SELEXIPAG
     Dosage: 800 MCG, BID
     Route: 048
  4. UPTRAVI [Suspect]
     Active Substance: SELEXIPAG
     Dosage: 200MCG AT NIGHT AND 400MCG IN THE MORNING
     Route: 048
     Dates: start: 20180824
  5. UPTRAVI [Suspect]
     Active Substance: SELEXIPAG
     Indication: PULMONARY ARTERIAL HYPERTENSION
     Dosage: 200 MCG, BID
     Route: 048
     Dates: start: 20180719
  6. UPTRAVI [Suspect]
     Active Substance: SELEXIPAG
     Dosage: 200MCG AT NIGHT AND 300MCG IN THE MORNING
     Route: 048
     Dates: start: 20180816

REACTIONS (15)
  - Ear infection [Unknown]
  - Hypoacusis [Unknown]
  - Influenza [Unknown]
  - Influenza virus test positive [Unknown]
  - Pancreatitis [Unknown]
  - Asthenia [Unknown]
  - Abdominal pain [Unknown]
  - Bacterial infection [Unknown]
  - Pyrexia [Unknown]
  - Pain in extremity [Unknown]
  - Dizziness [Unknown]
  - Alopecia [Unknown]
  - Myalgia [Recovering/Resolving]
  - Ligament sprain [Unknown]
  - Otorrhoea [Unknown]

NARRATIVE: CASE EVENT DATE: 20180725
